FAERS Safety Report 10173032 (Version 1)
Quarter: 2014Q2

REPORT INFORMATION
  Report Type: Spontaneous
  Country: US (occurrence: None)
  Receive Date: 20140423
  Receipt Date: 20140423
  Transmission Date: 20141212
  Serious: Yes (Other)
  Sender: FDA-Public Use
  Company Number: ALL1-2013-05410

PATIENT
  Age: 33 Year
  Sex: Female

DRUGS (1)
  1. VPRIV [Suspect]
     Indication: GAUCHER^S DISEASE
     Dosage: OTHER (9 VIALS MONTLY)
     Route: 041
     Dates: start: 20120517

REACTIONS (1)
  - Exposure during pregnancy [None]
